FAERS Safety Report 18104092 (Version 1)
Quarter: 2020Q3

REPORT INFORMATION
  Report Type: Spontaneous
  Country: BR (occurrence: BR)
  Receive Date: 20200803
  Receipt Date: 20200803
  Transmission Date: 20201103
  Serious: Yes (Other)
  Sender: FDA-Public Use
  Company Number: NVSC2020BR213422

PATIENT
  Sex: Male

DRUGS (5)
  1. EXELON [Suspect]
     Active Substance: RIVASTIGMINE TARTRATE
     Dosage: 4.6 MG, QD (PATCH 5 (CM2)
     Route: 062
     Dates: start: 2017
  2. EXELON [Suspect]
     Active Substance: RIVASTIGMINE TARTRATE
     Dosage: 12 MG, QD (FOR 3 YEARS)
     Route: 062
  3. EXELON [Suspect]
     Active Substance: RIVASTIGMINE TARTRATE
     Indication: MEMORY IMPAIRMENT
     Dosage: 1.5 MG (FOR ONE WEEK)
     Route: 062
     Dates: start: 2005
  4. EXELON [Suspect]
     Active Substance: RIVASTIGMINE TARTRATE
     Dosage: 1.9 MG, QD ((PATCH 2.5 (CM2))
     Route: 062
  5. EXELON [Suspect]
     Active Substance: RIVASTIGMINE TARTRATE
     Dosage: 1.9 MG, QD, (PATCH 2.5 (CM2))
     Route: 062
     Dates: start: 2005, end: 2009

REACTIONS (6)
  - Skin swelling [Unknown]
  - Product dose omission issue [Unknown]
  - Hypersensitivity [Unknown]
  - Erythema [Unknown]
  - Dementia Alzheimer^s type [Unknown]
  - Memory impairment [Unknown]

NARRATIVE: CASE EVENT DATE: 2009
